FAERS Safety Report 22214763 (Version 1)
Quarter: 2023Q2

REPORT INFORMATION
  Report Type: Spontaneous
  Country: TR (occurrence: TR)
  Receive Date: 20230415
  Receipt Date: 20230415
  Transmission Date: 20230722
  Serious: Yes (Death)
  Sender: FDA-Public Use
  Company Number: TR-ABBVIE-4729808

PATIENT
  Age: 43 Year

DRUGS (1)
  1. VENETOCLAX [Suspect]
     Active Substance: VENETOCLAX
     Indication: Chronic myelomonocytic leukaemia
     Route: 048

REACTIONS (5)
  - Death [Fatal]
  - Hyperbilirubinaemia [Unknown]
  - Hepatomegaly [Unknown]
  - Off label use [Unknown]
  - Splenomegaly [Unknown]
